FAERS Safety Report 5441973-8 (Version None)
Quarter: 2007Q3

REPORT INFORMATION
  Report Type: 
  Country: None (occurrence: None)
  Receive Date: 20070904
  Receipt Date: 20070824
  Transmission Date: 20080115
  Serious: Yes (Hospitalization)
  Sender: FDA-Public Use
  Company Number: B0482341A

PATIENT
  Age: 52 Year
  Sex: Male

DRUGS (7)
  1. PAXIL [Suspect]
     Route: 048
  2. PEGINTERFERON ALFA-2A [Suspect]
     Indication: HEPATITIS C
     Route: 058
     Dates: start: 20060512, end: 20060912
  3. REBETOL [Suspect]
     Indication: HEPATITIS C
     Route: 048
     Dates: start: 20060512, end: 20060912
  4. ROHYPNOL [Suspect]
     Route: 065
  5. CHLORPROMAZINE HCL [Suspect]
     Route: 065
  6. PERPHENAZINE [Suspect]
     Route: 065
     Dates: end: 20060713
  7. DOGMATYL [Suspect]
     Route: 065
     Dates: start: 20060831

REACTIONS (9)
  - COGWHEEL RIGIDITY [None]
  - DYSKINESIA [None]
  - DYSPHAGIA [None]
  - EXTRAPYRAMIDAL DISORDER [None]
  - MOVEMENT DISORDER [None]
  - MUSCLE CONTRACTURE [None]
  - MUSCLE RIGIDITY [None]
  - PARKINSONISM [None]
  - TREMOR [None]
